FAERS Safety Report 14488516 (Version 2)
Quarter: 2018Q1

REPORT INFORMATION
  Report Type: Spontaneous
  Country: US (occurrence: US)
  Receive Date: 20180205
  Receipt Date: 20180328
  Transmission Date: 20180509
  Serious: Yes (Other)
  Sender: FDA-Public Use
  Company Number: US-NOVOPROD-583809

PATIENT
  Age: 80 Year
  Sex: Male
  Weight: 95.24 kg

DRUGS (2)
  1. LEVEMIR [Suspect]
     Active Substance: INSULIN DETEMIR
     Dosage: UNK
     Route: 058
     Dates: start: 20180226
  2. LEVEMIR [Suspect]
     Active Substance: INSULIN DETEMIR
     Indication: TYPE 2 DIABETES MELLITUS
     Dosage: 40 U, QD
     Route: 058
     Dates: start: 2015, end: 20180115

REACTIONS (5)
  - Diabetic amyotrophy [Recovered/Resolved]
  - Blood glucose increased [Not Recovered/Not Resolved]
  - IIIrd nerve paralysis [Recovering/Resolving]
  - Dermatitis contact [Recovered/Resolved]
  - Rash [Not Recovered/Not Resolved]

NARRATIVE: CASE EVENT DATE: 2016
